FAERS Safety Report 8212691-8 (Version None)
Quarter: 2012Q1

REPORT INFORMATION
  Report Type: 
  Country: None (occurrence: None)
  Receive Date: 20120315
  Receipt Date: 20120306
  Transmission Date: 20120608
  Serious: Yes (Life-Threatening)
  Sender: FDA-Public Use
  Company Number: JP-AMGEN-JPNCT2012014233

PATIENT
  Age: 63 Year
  Sex: Female
  Weight: 56 kg

DRUGS (9)
  1. FLUOROURACIL [Concomitant]
     Dosage: 3500 MG, Q2WK
     Route: 041
     Dates: start: 20120209, end: 20120211
  2. LEVOLEUCOVORIN CALCIUM [Concomitant]
     Indication: COLORECTAL CANCER
     Route: 041
     Dates: start: 20120209, end: 20120209
  3. EMEND [Concomitant]
     Indication: PROPHYLAXIS OF NAUSEA AND VOMITING
     Route: 048
     Dates: start: 20120209
  4. EMEND [Concomitant]
     Route: 048
     Dates: end: 20120211
  5. DECADRON [Concomitant]
     Indication: PROPHYLAXIS OF NAUSEA AND VOMITING
     Route: 041
     Dates: start: 20120209, end: 20120209
  6. PANITUMUMAB [Suspect]
     Indication: COLORECTAL CANCER
     Dosage: UNK, Q2WK
     Route: 041
     Dates: start: 20120209, end: 20120209
  7. FLUOROURACIL [Concomitant]
     Indication: COLORECTAL CANCER
     Dosage: 600 MG, Q2WK
     Route: 040
     Dates: start: 20120209, end: 20120209
  8. TOPOTECAN [Concomitant]
     Indication: COLORECTAL CANCER
     Route: 041
     Dates: start: 20120209, end: 20120209
  9. GRANISETRON [Concomitant]
     Indication: PROPHYLAXIS OF NAUSEA AND VOMITING
     Route: 041
     Dates: start: 20120209, end: 20120209

REACTIONS (1)
  - INTERSTITIAL LUNG DISEASE [None]
